FAERS Safety Report 14494689 (Version 1)
Quarter: 2018Q1

REPORT INFORMATION
  Report Type: Spontaneous
  Country: US (occurrence: US)
  Receive Date: 20180206
  Receipt Date: 20180206
  Transmission Date: 20180509
  Serious: Yes (Hospitalization)
  Sender: FDA-Public Use
  Company Number: US-VERTEX PHARMACEUTICALS-2018-000886

PATIENT
  Sex: Male
  Weight: 59 kg

DRUGS (2)
  1. TOBRAMYCIN SULFATE. [Concomitant]
     Active Substance: TOBRAMYCIN SULFATE
     Dosage: 300 MG
     Route: 055
  2. ORKAMBI [Suspect]
     Active Substance: IVACAFTOR\LUMACAFTOR
     Indication: CYSTIC FIBROSIS
     Dosage: 2 TABLETS, BID
     Route: 048

REACTIONS (1)
  - Pneumothorax [Not Recovered/Not Resolved]

NARRATIVE: CASE EVENT DATE: 2018
